FAERS Safety Report 7573328-4 (Version None)
Quarter: 2011Q2

REPORT INFORMATION
  Report Type: 
  Country: None (occurrence: None)
  Receive Date: 20110627
  Receipt Date: 20110615
  Transmission Date: 20111010
  Serious: No
  Sender: FDA-Public Use
  Company Number: PHHY2011US53751

PATIENT
  Sex: Male

DRUGS (5)
  1. SIMVASTATIN [Concomitant]
  2. LANTUS [Concomitant]
  3. METFORMIN HCL [Concomitant]
     Dosage: UNK
  4. TASIGNA [Suspect]
     Indication: LEUKAEMIA
     Dosage: 300 MG, BID
     Route: 048
  5. PAROXETINE HCL [Concomitant]

REACTIONS (2)
  - BALANCE DISORDER [None]
  - DIZZINESS [None]
